FAERS Safety Report 18002259 (Version 1)
Quarter: 2020Q3

REPORT INFORMATION
  Report Type: Report from Study
  Country: US (occurrence: US)
  Receive Date: 20200710
  Receipt Date: 20200710
  Transmission Date: 20201103
  Serious: Yes (Other)
  Sender: FDA-Public Use
  Company Number: US-ROCHE-2637760

PATIENT
  Sex: Female
  Weight: 90.8 kg

DRUGS (3)
  1. OCREVUS [Suspect]
     Active Substance: OCRELIZUMAB
     Dosage: FIRST FULL DOSE INFUSION
     Route: 042
     Dates: start: 20191217
  2. OCREVUS [Suspect]
     Active Substance: OCRELIZUMAB
     Indication: SECONDARY PROGRESSIVE MULTIPLE SCLEROSIS
     Route: 065
     Dates: start: 20190604
  3. OCREVUS [Suspect]
     Active Substance: OCRELIZUMAB
     Indication: PRIMARY PROGRESSIVE MULTIPLE SCLEROSIS
     Dosage: SECOND SPLIT DOSE
     Route: 042
     Dates: start: 20200618

REACTIONS (4)
  - COVID-19 [Recovered/Resolved]
  - Gait disturbance [Not Recovered/Not Resolved]
  - Stress [Unknown]
  - Limb discomfort [Not Recovered/Not Resolved]

NARRATIVE: CASE EVENT DATE: 2020
